FAERS Safety Report 20675633 (Version 2)
Quarter: 2022Q2

REPORT INFORMATION
  Report Type: Spontaneous
  Country: US (occurrence: US)
  Receive Date: 20220405
  Receipt Date: 20220513
  Transmission Date: 20220721
  Serious: No
  Sender: FDA-Public Use
  Company Number: US-SA-SAC20220329000809

PATIENT
  Age: 14 Year
  Sex: Female
  Weight: 51.5 kg

DRUGS (2)
  1. CEREZYME [Suspect]
     Active Substance: IMIGLUCERASE
     Indication: Gaucher^s disease
     Dosage: 2400 IU, QOW
     Route: 041
     Dates: start: 20220302, end: 202203
  2. CEREZYME [Suspect]
     Active Substance: IMIGLUCERASE
     Dosage: 3000 IU, QOW
     Route: 041
     Dates: start: 20220302, end: 20220303

REACTIONS (1)
  - Headache [Recovered/Resolved]

NARRATIVE: CASE EVENT DATE: 20220302
